FAERS Safety Report 6286979-4 (Version None)
Quarter: 2009Q3

REPORT INFORMATION
  Report Type: 
  Country: None (occurrence: None)
  Receive Date: 20090728
  Receipt Date: 20090716
  Transmission Date: 20100115
  Serious: Yes (Death, Life-Threatening, Hospitalization, Disabling)
  Sender: FDA-Public Use
  Company Number: BE-ELI_LILLY_AND_COMPANY-BE200906001278

PATIENT
  Sex: Female
  Weight: 65 kg

DRUGS (28)
  1. PEMETREXED [Suspect]
     Indication: NON-SMALL CELL LUNG CANCER
     Dosage: 500 MG/M2, DAY 1 EVERY 21 DAYS
     Route: 042
     Dates: start: 20090528, end: 20090624
  2. CISPLATIN [Suspect]
     Indication: NON-SMALL CELL LUNG CANCER
     Dosage: 75 MG/M2, DAY 1 EVERY 21 DAYS
     Route: 042
     Dates: start: 20090528, end: 20090624
  3. FOLIC ACID [Concomitant]
     Indication: PROPHYLAXIS
     Dosage: 0.4 MG, UNKNOWN
     Dates: start: 20090519, end: 20090624
  4. VITAMIN B-12 [Concomitant]
     Indication: PROPHYLAXIS
     Dosage: UNK, UNK
     Dates: start: 20090519, end: 20090519
  5. MEDROL [Concomitant]
     Indication: BONE PAIN
     Dosage: 32 MG, UNK
     Dates: start: 20090519, end: 20090612
  6. CARDIOASPIRINE [Concomitant]
     Indication: PROPHYLAXIS
     Dosage: UNK, UNK
     Dates: start: 19860101, end: 20090603
  7. CETIRIZINE [Concomitant]
     Indication: PROPHYLAXIS
     Dosage: UNK, UNK
     Dates: start: 20090510, end: 20090603
  8. EMCONCOR [Concomitant]
     Indication: HYPERTENSION
     Dosage: UNK, UNK
     Dates: start: 19860101, end: 20090706
  9. NULYTELY [Concomitant]
     Indication: CONSTIPATION
     Dosage: UNK, AS NEEDED
     Dates: start: 20090517, end: 20090603
  10. SIPRALEXA [Concomitant]
     Indication: DEPRESSION
     Dosage: UNK, UNK
     Dates: start: 20040210, end: 20090606
  11. LANSOPRAZOLE [Concomitant]
     Indication: OESOPHAGITIS
     Dosage: UNK, UNK
     Dates: start: 20060101, end: 20090706
  12. MS DIRECT [Concomitant]
     Indication: BONE PAIN
     Dosage: UNK, UNK
     Dates: start: 20090510, end: 20090615
  13. ZOLPIDEM [Concomitant]
     Indication: INSOMNIA
     Dosage: UNK, UNK
     Dates: start: 20060101, end: 20090706
  14. DYTENZIDE [Concomitant]
     Indication: HYPERTENSION
     Dosage: UNK, UNK
     Dates: start: 20040210, end: 20090603
  15. BETAHISTIDINE/BETAHISTIDINE DIHYDROCHLORIDE [Concomitant]
     Indication: PRESYNCOPE
     Dosage: UNK, UNK
     Dates: start: 19930101, end: 20090614
  16. DULCOLAX [Concomitant]
     Indication: CONSTIPATION
     Dosage: UNK, UNK
     Dates: start: 20090320, end: 20090622
  17. ACETAMINOPHEN [Concomitant]
     Indication: BONE PAIN
     Dosage: UNK, UNK
     Dates: start: 20090510, end: 20090602
  18. DURAGESIC-100 [Concomitant]
     Indication: BONE PAIN
     Dosage: UNK, UNK
     Dates: start: 20090511, end: 20090621
  19. DAFALGAN [Concomitant]
     Indication: BONE PAIN
     Dosage: UNK, AS NEEDED
     Dates: start: 20090525, end: 20090706
  20. ENOXAPARIN SODIUM [Concomitant]
     Indication: PROPHYLAXIS
     Dosage: UNK, UNK
     Dates: start: 20090519, end: 20090706
  21. CALCIUM CARBONATE [Concomitant]
     Indication: OSTEOPOROSIS
     Dates: start: 19950101, end: 20090614
  22. ZOFRAN [Concomitant]
     Indication: PROPHYLAXIS
     Dates: start: 20090528, end: 20090528
  23. ZOFRAN [Concomitant]
     Dates: start: 20090612, end: 20090630
  24. EMEND [Concomitant]
     Indication: PROPHYLAXIS
     Dates: start: 20090528, end: 20090530
  25. LITICAN [Concomitant]
     Indication: PROPHYLAXIS
     Dates: start: 20090529, end: 20090530
  26. LITICAN [Concomitant]
     Dates: start: 20090531, end: 20090614
  27. LASIX [Concomitant]
     Indication: PROPHYLAXIS
     Dates: start: 20090528, end: 20090528
  28. VOLTAREN                                /SCH/ [Concomitant]
     Indication: POLYARTHRITIS
     Dates: start: 20090525, end: 20090526

REACTIONS (6)
  - CEREBROVASCULAR ACCIDENT [None]
  - DIARRHOEA [None]
  - FEBRILE NEUTROPENIA [None]
  - JOINT DISLOCATION [None]
  - NAUSEA [None]
  - VOMITING [None]
